FAERS Safety Report 16006316 (Version 2)
Quarter: 2019Q1

REPORT INFORMATION
  Report Type: Report from Study
  Country: JP (occurrence: JP)
  Receive Date: 20190225
  Receipt Date: 20190304
  Transmission Date: 20190418
  Serious: Yes (Death)
  Sender: FDA-Public Use
  Company Number: JP-ROCHE-2272032

PATIENT
  Age: 79 Year
  Sex: Male
  Weight: 42 kg

DRUGS (1)
  1. ATEZOLIZUMAB. [Suspect]
     Active Substance: ATEZOLIZUMAB
     Indication: SQUAMOUS CELL CARCINOMA OF LUNG
     Dosage: MOST RECENT DOSE WAS RECEIVED ON 04/FEB/2019
     Route: 041
     Dates: start: 20190204

REACTIONS (3)
  - Sudden death [Fatal]
  - Dehydration [Unknown]
  - Hypophagia [Unknown]

NARRATIVE: CASE EVENT DATE: 20190219
